FAERS Safety Report 11751278 (Version 3)
Quarter: 2016Q2

REPORT INFORMATION
  Report Type: Spontaneous
  Country: US (occurrence: US)
  Receive Date: 20151118
  Receipt Date: 20160422
  Transmission Date: 20160815
  Serious: No
  Sender: FDA-Public Use
  Company Number: US-BIOMARINAP-US-2015-108121

PATIENT
  Sex: Female
  Weight: 128 kg

DRUGS (1)
  1. KUVAN [Suspect]
     Active Substance: SAPROPTERIN DIHYDROCHLORIDE
     Indication: PHENYLKETONURIA
     Dosage: 20 MG/KG, QD
     Route: 048
     Dates: start: 20100622

REACTIONS (6)
  - Exposure during pregnancy [Unknown]
  - Sinusitis [Unknown]
  - Hyperchlorhydria [Unknown]
  - Cystitis [Unknown]
  - Candida infection [Unknown]
  - Kidney infection [Unknown]
